FAERS Safety Report 4854713-8 (Version None)
Quarter: 2005Q4

REPORT INFORMATION
  Report Type: 
  Country: None (occurrence: None)
  Receive Date: 20051214
  Receipt Date: 20051214
  Transmission Date: 20060501
  Serious: No
  Sender: FDA-Public Use
  Company Number: None

PATIENT
  Age: 59 Year
  Sex: Male
  Weight: 99.7913 kg

DRUGS (5)
  1. ROSUVASTATIN 10 MG [Suspect]
     Indication: HYPERLIPIDAEMIA
     Dosage: 10 MG  DAILY  PO
     Route: 048
  2. FENOFIBRATE [Concomitant]
  3. ROSIGLITAZONE [Concomitant]
  4. NIASPAN [Concomitant]
  5. ASPIRIN [Concomitant]

REACTIONS (1)
  - MYALGIA [None]
